FAERS Safety Report 9635873 (Version 2)
Quarter: 2013Q4

REPORT INFORMATION
  Report Type: Spontaneous
  Country: US (occurrence: US)
  Receive Date: 20131021
  Receipt Date: 20131021
  Transmission Date: 20140711
  Serious: No
  Sender: FDA-Public Use
  Company Number: US-PURDUE-USA-2013-0103055

PATIENT
  Age: 57 Year
  Sex: Female
  Weight: 74.83 kg

DRUGS (7)
  1. BUTRANS [Suspect]
     Indication: FRACTURED SACRUM
     Dosage: 5 MCG/HR, 1/WEEK
     Route: 062
     Dates: start: 201303, end: 201304
  2. BUTRANS [Suspect]
     Indication: INTERVERTEBRAL DISC COMPRESSION
     Dosage: 20 MCG/HR, 1/WEEK
     Route: 062
     Dates: end: 20130602
  3. BUTRANS [Suspect]
     Indication: BACK PAIN
  4. OXYCODONE HYDROCHLORIDE (SIMILAR TO NDA 22-272) [Concomitant]
     Indication: PRODUCT USED FOR UNKNOWN INDICATION
     Dosage: 10 MG, PRN
  5. FOSAMAX [Concomitant]
     Indication: PRODUCT USED FOR UNKNOWN INDICATION
  6. VITAMINS                           /90003601/ [Concomitant]
     Indication: PRODUCT USED FOR UNKNOWN INDICATION
  7. CALCIUM [Concomitant]
     Indication: PRODUCT USED FOR UNKNOWN INDICATION

REACTIONS (8)
  - Application site discolouration [Unknown]
  - Drug ineffective [Recovered/Resolved]
  - Application site irritation [Unknown]
  - Application site rash [Unknown]
  - Application site erythema [Not Recovered/Not Resolved]
  - Application site pruritus [Not Recovered/Not Resolved]
  - Product adhesion issue [Unknown]
  - Extra dose administered [Unknown]
